FAERS Safety Report 5491081-5 (Version None)
Quarter: 2007Q4

REPORT INFORMATION
  Report Type: 
  Country: None (occurrence: None)
  Receive Date: 20071019
  Receipt Date: 20070917
  Transmission Date: 20080405
  Serious: Yes (Hospitalization)
  Sender: FDA-Public Use
  Company Number: US-SANOFI-SYNTHELABO-A03200705363

PATIENT
  Sex: Female
  Weight: 57.6 kg

DRUGS (6)
  1. OXALIPLATIN [Suspect]
     Indication: COLORECTAL CANCER
     Route: 042
     Dates: start: 20070725, end: 20070725
  2. LEUCOVORIN [Suspect]
     Indication: COLORECTAL CANCER
     Route: 042
  3. FLUOROURACIL [Suspect]
     Indication: COLORECTAL CANCER
     Route: 042
  4. LIPITOR [Concomitant]
     Dosage: UNK
     Route: 048
  5. HYDROCHLOROTHIAZIDE [Concomitant]
     Dosage: UNK
     Route: 048
  6. XANAX [Concomitant]
     Dosage: 0.25 MG EVERY 6 HOURS AS NEEDED
     Route: 048
     Dates: start: 20070710

REACTIONS (5)
  - ABDOMINAL PAIN [None]
  - CEREBROVASCULAR ACCIDENT [None]
  - DIARRHOEA [None]
  - EMPTY SELLA SYNDROME [None]
  - SEPTIC SHOCK [None]
